FAERS Safety Report 12639302 (Version 1)
Quarter: 2016Q3

REPORT INFORMATION
  Report Type: Spontaneous
  Country: US (occurrence: None)
  Receive Date: 20160809
  Receipt Date: 20160809
  Transmission Date: 20161109
  Serious: Yes (Death)
  Sender: FDA-Public Use
  Company Number: None

PATIENT
  Age: 45 Year
  Sex: Male

DRUGS (2)
  1. CARBAMAZEPINE. [Suspect]
     Active Substance: CARBAMAZEPINE
  2. MITRAGYNINE (KRATOM) [Suspect]
     Active Substance: MITRAGYNINE

REACTIONS (6)
  - Accidental death [None]
  - Toxicity to various agents [None]
  - Substance abuse [None]
  - Pulmonary congestion [None]
  - Blood alcohol increased [None]
  - Pulmonary oedema [None]

NARRATIVE: CASE EVENT DATE: 20150702
